FAERS Safety Report 8604392-9 (Version None)
Quarter: 2012Q3

REPORT INFORMATION
  Report Type: 
  Country: None (occurrence: None)
  Receive Date: 20120820
  Receipt Date: 20120809
  Transmission Date: 20120928
  Serious: Yes (Hospitalization)
  Sender: FDA-Public Use
  Company Number: US-JNJFOC-20120806377

PATIENT
  Sex: Female
  Weight: 58.97 kg

DRUGS (6)
  1. BLOOD PRESSURE MEDICATION NOS [Concomitant]
     Indication: BLOOD PRESSURE
     Route: 065
  2. SYNTHROID [Concomitant]
     Indication: THYROID DISORDER
     Route: 065
  3. REMICADE [Suspect]
     Indication: RHEUMATOID ARTHRITIS
     Route: 042
     Dates: end: 20120101
  4. FOSAMAX [Concomitant]
     Indication: BONE DISORDER
     Route: 065
  5. UNSPECIFIED CHOLESTEROL MEDICATION [Concomitant]
     Indication: BLOOD CHOLESTEROL
     Route: 065
  6. METHOTREXATE [Suspect]
     Indication: RHEUMATOID ARTHRITIS
     Route: 065
     Dates: end: 20120701

REACTIONS (2)
  - BREAST CANCER [None]
  - BREAST CANCER FEMALE [None]
